FAERS Safety Report 12126873 (Version 2)
Quarter: 2016Q1

REPORT INFORMATION
  Report Type: Spontaneous
  Country: US (occurrence: US)
  Receive Date: 20160229
  Receipt Date: 20160311
  Transmission Date: 20160526
  Serious: No
  Sender: FDA-Public Use
  Company Number: US-BAYER-2016-037279

PATIENT
  Age: 56 Year
  Sex: Female

DRUGS (4)
  1. CLIMARA [Suspect]
     Active Substance: ESTRADIOL
     Indication: MENOPAUSE
     Dosage: 0.025 MG, UNK
     Route: 062
     Dates: start: 20160229
  2. CLIMARA [Suspect]
     Active Substance: ESTRADIOL
     Indication: MENOPAUSE
     Dosage: 0.05 MG, UNK
     Route: 062
     Dates: start: 20160130
  3. MULTIVITAMIN [Concomitant]
     Active Substance: VITAMINS
  4. PROGESTERON [Concomitant]
     Indication: MENOPAUSE
     Dosage: 100 MG, QD

REACTIONS (5)
  - Vaginal haemorrhage [Recovered/Resolved]
  - Circumstance or information capable of leading to medication error [Recovered/Resolved]
  - Migraine [Recovered/Resolved]
  - Vaginal haemorrhage [Recovering/Resolving]
  - Abdominal distension [Recovering/Resolving]

NARRATIVE: CASE EVENT DATE: 20160218
